FAERS Safety Report 13267555 (Version 1)
Quarter: 2017Q1

REPORT INFORMATION
  Report Type: Spontaneous
  Country: US (occurrence: US)
  Receive Date: 20170223
  Receipt Date: 20170223
  Transmission Date: 20170428
  Serious: Yes (Hospitalization)
  Sender: FDA-Public Use
  Company Number: None

PATIENT
  Age: 71 Year
  Sex: Male

DRUGS (20)
  1. DONEPEZIL. [Concomitant]
     Active Substance: DONEPEZIL
  2. CEPHALEXIN. [Concomitant]
     Active Substance: CEPHALEXIN
  3. ONE TOUCH TES ULTRA [Concomitant]
  4. TOBRAMYCIN. [Concomitant]
     Active Substance: TOBRAMYCIN
  5. TAMSULOSIN [Concomitant]
     Active Substance: TAMSULOSIN
  6. ATORVASTATIN [Concomitant]
     Active Substance: ATORVASTATIN
  7. TOBREX [Concomitant]
     Active Substance: TOBRAMYCIN
  8. PREDNISOLONE SUS [Concomitant]
  9. ZETIA [Concomitant]
     Active Substance: EZETIMIBE
  10. AMLODIPINE [Concomitant]
     Active Substance: AMLODIPINE BESYLATE
  11. FINASTERIDE. [Concomitant]
     Active Substance: FINASTERIDE
  12. RESTASIS [Concomitant]
     Active Substance: CYCLOSPORINE
  13. SERTRALINE [Concomitant]
     Active Substance: SERTRALINE HYDROCHLORIDE
  14. TRULICITY [Concomitant]
     Active Substance: DULAGLUTIDE
  15. ADVAIR DISK [Concomitant]
  16. HUMALOG [Concomitant]
     Active Substance: INSULIN LISPRO
  17. SODIUM BICAR [Concomitant]
  18. ESBRIET [Suspect]
     Active Substance: PIRFENIDONE
     Indication: IDIOPATHIC PULMONARY FIBROSIS
     Route: 048
     Dates: start: 20150923
  19. VALACYCLOVIR [Concomitant]
     Active Substance: VALACYCLOVIR HYDROCHLORIDE
  20. V-GO 40 [Concomitant]

REACTIONS (1)
  - Eye infection [None]

NARRATIVE: CASE EVENT DATE: 20170210
